FAERS Safety Report 5151404-3 (Version None)
Quarter: 2006Q4

REPORT INFORMATION
  Report Type: 
  Country: None (occurrence: None)
  Receive Date: 20061115
  Receipt Date: 20061106
  Transmission Date: 20070319
  Serious: Yes (Death)
  Sender: FDA-Public Use
  Company Number: GB-AVENTIS-200621559GDDC

PATIENT
  Age: 67 Year
  Sex: Female
  Weight: 54 kg

DRUGS (5)
  1. ARAVA [Suspect]
     Indication: RHEUMATOID ARTHRITIS
     Route: 048
     Dates: start: 20040201, end: 20060701
  2. ARTHROTEC                          /01182401/ [Concomitant]
     Indication: RHEUMATOID ARTHRITIS
     Route: 048
  3. ESOMEPRAZOLE MAGNESIUM [Concomitant]
     Indication: PROPHYLAXIS AGAINST GASTROINTESTINAL ULCER
     Dosage: DOSE: UNK
     Route: 048
  4. PREDNISOLONE [Concomitant]
     Indication: RHEUMATOID ARTHRITIS
     Route: 048
  5. VENTOLIN [Concomitant]
     Indication: ASTHMA
     Dosage: DOSE: UNK
     Route: 055

REACTIONS (3)
  - MYCOBACTERIUM AVIUM COMPLEX INFECTION [None]
  - PLEURAL EFFUSION [None]
  - PNEUMOTHORAX [None]
